FAERS Safety Report 5782335-3 (Version None)
Quarter: 2008Q2

REPORT INFORMATION
  Report Type: 
  Country: None (occurrence: None)
  Receive Date: 20080623
  Receipt Date: 20080612
  Transmission Date: 20081010
  Serious: Yes (Hospitalization, Other)
  Sender: FDA-Public Use
  Company Number: CH-WYE-G01678808

PATIENT
  Age: 55 Year
  Sex: Male

DRUGS (1)
  1. NONACOG ALFA [Suspect]

REACTIONS (1)
  - NEOPLASM MALIGNANT [None]
